FAERS Safety Report 8204564-1 (Version None)
Quarter: 2012Q1

REPORT INFORMATION
  Report Type: 
  Country: None (occurrence: None)
  Receive Date: 20120313
  Receipt Date: 20120308
  Transmission Date: 20120608
  Serious: Yes (Hospitalization)
  Sender: FDA-Public Use
  Company Number: DE-PFIZER INC-2012061789

PATIENT
  Age: 62 Year
  Sex: Female

DRUGS (2)
  1. SERTRALINE HYDROCHLORIDE [Suspect]
     Dosage: 25 MG, UNK
     Route: 048
     Dates: start: 20120105, end: 20120108
  2. ZOPICLONE [Concomitant]
     Dosage: 7.5 MG, UNK
     Route: 048
     Dates: start: 20120106

REACTIONS (1)
  - NERVOUS SYSTEM DISORDER [None]
